FAERS Safety Report 7795313-X (Version None)
Quarter: 2011Q4

REPORT INFORMATION
  Report Type: 
  Country: None (occurrence: None)
  Receive Date: 20111004
  Receipt Date: 20110930
  Transmission Date: 20120403
  Serious: Yes (Death, Life-Threatening, Other)
  Sender: FDA-Public Use
  Company Number: PHHY2011JP61407

PATIENT
  Sex: Female
  Weight: 44 kg

DRUGS (7)
  1. GEFITINIB [Concomitant]
     Dosage: UNK UKN, UNK
     Route: 048
     Dates: start: 20070109
  2. CARBOPLATIN [Concomitant]
     Indication: LUNG ADENOCARCINOMA STAGE IV
     Dosage: UNK UKN, UNK
     Dates: start: 20061106
  3. PACLITAXEL [Concomitant]
     Indication: LUNG ADENOCARCINOMA STAGE IV
     Dosage: UNK UKN, UNK
     Dates: start: 20061106
  4. ZOMETA [Suspect]
     Indication: METASTASES TO BONE
     Dosage: 4 MG, UNK
     Route: 041
     Dates: start: 20061013, end: 20061013
  5. CARBOPLATIN [Concomitant]
     Dosage: UNK UKN, UNK
     Dates: start: 20061205
  6. PACLITAXEL [Concomitant]
     Dosage: UNK UKN, UNK
     Dates: start: 20061205
  7. GEMCITABINE HYDROCHLORIDE [Concomitant]
     Dosage: UNK UKN, UNK
     Dates: start: 20070319, end: 20070329

REACTIONS (6)
  - NEOPLASM MALIGNANT [None]
  - CONVULSION [None]
  - GENERAL PHYSICAL HEALTH DETERIORATION [None]
  - METASTASES TO LUNG [None]
  - ALTERED STATE OF CONSCIOUSNESS [None]
  - NEOPLASM PROGRESSION [None]
